FAERS Safety Report 10573356 (Version 1)
Quarter: 2014Q4

REPORT INFORMATION
  Report Type: Spontaneous
  Country: RU (occurrence: None)
  Receive Date: 20141030
  Receipt Date: 20141030
  Transmission Date: 20150529
  Serious: Yes (Other)
  Sender: FDA-Public Use
  Company Number: PHHY2014RU094804

PATIENT
  Age: 66 Year
  Sex: Male

DRUGS (1)
  1. SEBIVO [Suspect]
     Active Substance: TELBIVUDINE
     Indication: CHRONIC HEPATITIS
     Route: 048
     Dates: start: 201103

REACTIONS (4)
  - Myopathy [None]
  - Aspartate aminotransferase increased [None]
  - Blood creatine phosphokinase increased [None]
  - Serum ferritin increased [None]

NARRATIVE: CASE EVENT DATE: 20140604
